FAERS Safety Report 18293309 (Version 3)
Quarter: 2021Q1

REPORT INFORMATION
  Report Type: Spontaneous
  Country: BR (occurrence: BR)
  Receive Date: 20200921
  Receipt Date: 20210104
  Transmission Date: 20210419
  Serious: Yes (Hospitalization, Other)
  Sender: FDA-Public Use
  Company Number: BR-BIOMARINAP-BR-2020-132393

PATIENT
  Age: 14 Year
  Sex: Female
  Weight: 45 kg

DRUGS (1)
  1. ALDURAZYME [Suspect]
     Active Substance: LARONIDASE
     Indication: MUCOPOLYSACCHARIDOSIS
     Dosage: 8 DOSAGE FORM
     Route: 042
     Dates: start: 20100101

REACTIONS (17)
  - Dyspnoea [Recovered/Resolved]
  - Pulmonary oedema [Unknown]
  - Condition aggravated [Recovered/Resolved]
  - Off label use [Unknown]
  - Faeces hard [Unknown]
  - Pyrexia [Recovered/Resolved]
  - Condition aggravated [Unknown]
  - Disease progression [Unknown]
  - Product dose omission issue [Unknown]
  - Laziness [Unknown]
  - Pulmonary function test abnormal [Unknown]
  - Oxygen saturation decreased [Recovered/Resolved]
  - Illness [Unknown]
  - Oedema [Unknown]
  - Fatigue [Unknown]
  - Feeling of body temperature change [Unknown]
  - Secretion discharge [Unknown]

NARRATIVE: CASE EVENT DATE: 20100101
